FAERS Safety Report 8116791-2 (Version None)
Quarter: 2012Q1

REPORT INFORMATION
  Report Type: 
  Country: None (occurrence: None)
  Receive Date: 20120206
  Receipt Date: 20120201
  Transmission Date: 20120608
  Serious: Yes (Hospitalization)
  Sender: FDA-Public Use
  Company Number: PHHY2012AU008282

PATIENT

DRUGS (1)
  1. EXFORGE [Suspect]

REACTIONS (1)
  - HYPONATRAEMIA [None]
